FAERS Safety Report 9829749 (Version 1)
Quarter: 2014Q1

REPORT INFORMATION
  Report Type: Spontaneous
  Country: US (occurrence: US)
  Receive Date: 20140120
  Receipt Date: 20140120
  Transmission Date: 20141002
  Serious: Yes (Death, Hospitalization)
  Sender: FDA-Public Use
  Company Number: US-JNJFOC-20140109844

PATIENT
  Age: 10 Year
  Sex: Female

DRUGS (2)
  1. ACETAMINOPHEN [Suspect]
     Route: 048
  2. ACETAMINOPHEN [Suspect]
     Indication: PRODUCT USED FOR UNKNOWN INDICATION
     Route: 048

REACTIONS (8)
  - Acute hepatic failure [Fatal]
  - Accidental exposure to product by child [Fatal]
  - Toxicity to various agents [Fatal]
  - Duodenal ulcer [Fatal]
  - Hepatitis toxic [Unknown]
  - Depressed level of consciousness [Unknown]
  - Agitation [Unknown]
  - Dehydration [Unknown]
